FAERS Safety Report 5300266-X (Version None)
Quarter: 2007Q2

REPORT INFORMATION
  Report Type: 
  Country: None (occurrence: None)
  Receive Date: 20070418
  Receipt Date: 20070411
  Transmission Date: 20071010
  Serious: Yes (Other)
  Sender: FDA-Public Use
  Company Number: US-BRISTOL-MYERS SQUIBB COMPANY-13715206

PATIENT
  Age: 8 Year
  Sex: Female
  Weight: 27 kg

DRUGS (2)
  1. IXABEPILONE [Suspect]
     Indication: NEUROBLASTOMA
     Route: 042
     Dates: start: 20070228, end: 20070302
  2. DEXAMETHASONE [Suspect]

REACTIONS (3)
  - ABDOMINAL PAIN [None]
  - HYPERGLYCAEMIA [None]
  - HYPERTENSION [None]
